FAERS Safety Report 9641138 (Version 1)
Quarter: 2013Q4

REPORT INFORMATION
  Report Type: Spontaneous
  Country: US (occurrence: US)
  Receive Date: 20131023
  Receipt Date: 20131023
  Transmission Date: 20140711
  Serious: Yes (Death)
  Sender: FDA-Public Use
  Company Number: US-ASTELLAS-2013US011022

PATIENT
  Age: 69 Year
  Sex: Male

DRUGS (1)
  1. PROGRAF [Suspect]
     Indication: HEART TRANSPLANT
     Dosage: 1.5MG IN AM/1MG IN PM
     Route: 048
     Dates: start: 20130425, end: 20131012

REACTIONS (1)
  - Death [Fatal]
